FAERS Safety Report 8320375-0 (Version None)
Quarter: 2012Q2

REPORT INFORMATION
  Report Type: 
  Country: None (occurrence: None)
  Receive Date: 20120430
  Receipt Date: 20120426
  Transmission Date: 20120825
  Serious: No
  Sender: FDA-Public Use
  Company Number: US-PFIZER INC-2012097506

PATIENT
  Age: 68 Year
  Sex: Male

DRUGS (1)
  1. MEDROL [Suspect]
     Indication: ASTHMA
     Dosage: 4 MG, UNK

REACTIONS (1)
  - NO ADVERSE EVENT [None]
